FAERS Safety Report 5010056-3 (Version None)
Quarter: 2006Q2

REPORT INFORMATION
  Report Type: 
  Country: None (occurrence: None)
  Receive Date: 20060404
  Receipt Date: 20051115
  Transmission Date: 20061013
  Serious: No
  Sender: FDA-Public Use
  Company Number: US200511001025

PATIENT
  Age: 58 Year
  Sex: Female

DRUGS (5)
  1. CYMBALTA [Suspect]
     Indication: DEPRESSION
     Dosage: 60 MG, EACH EVENING, ORAL
     Route: 048
     Dates: start: 20040901
  2. PROZAC [Concomitant]
  3. LITHIUM (LITHIUM) [Concomitant]
  4. KLONOPIN [Concomitant]
  5. HORMONES AND RELATED AGENTS [Concomitant]

REACTIONS (2)
  - DEPRESSION [None]
  - DRUG INEFFECTIVE [None]
